FAERS Safety Report 20029530 (Version 2)
Quarter: 2021Q4

REPORT INFORMATION
  Report Type: Spontaneous
  Country: CR (occurrence: None)
  Receive Date: 20211103
  Receipt Date: 20211110
  Transmission Date: 20220304
  Serious: Yes (Other)
  Sender: FDA-Public Use
  Company Number: 2021A792263

PATIENT
  Sex: Female

DRUGS (1)
  1. FASLODEX [Suspect]
     Active Substance: FULVESTRANT
     Indication: Neoplasm malignant
     Dosage: 500.0MG UNKNOWN
     Route: 030
     Dates: start: 2019

REACTIONS (2)
  - Malignant neoplasm of spinal cord [Recovered/Resolved]
  - Drug ineffective [Recovered/Resolved]
